FAERS Safety Report 15358511 (Version 2)
Quarter: 2019Q1

REPORT INFORMATION
  Report Type: Spontaneous
  Country: NL (occurrence: NL)
  Receive Date: 20180906
  Receipt Date: 20190126
  Transmission Date: 20190417
  Serious: Yes (Other)
  Sender: FDA-Public Use
  Company Number: PHHY2018NL088430

PATIENT
  Age: 62 Year
  Sex: Male

DRUGS (4)
  1. PEMETREXED. [Suspect]
     Active Substance: PEMETREXED
     Indication: LUNG ADENOCARCINOMA
     Dosage: UNK
     Route: 065
  2. GEFITINIB. [Suspect]
     Active Substance: GEFITINIB
     Indication: LUNG ADENOCARCINOMA
     Dosage: UNK
     Route: 048
  3. CARBOPLATIN. [Suspect]
     Active Substance: CARBOPLATIN
     Indication: LUNG ADENOCARCINOMA
     Dosage: UNK
     Route: 065
  4. AFATINIB [Suspect]
     Active Substance: AFATINIB
     Indication: HER2 GENE AMPLIFICATION
     Route: 048

REACTIONS (4)
  - Disease progression [Unknown]
  - Metastases to bone [Unknown]
  - Metastases to pleura [Unknown]
  - Drug resistance [Recovered/Resolved]
